FAERS Safety Report 8256608-9 (Version None)
Quarter: 2012Q2

REPORT INFORMATION
  Report Type: 
  Country: None (occurrence: None)
  Receive Date: 20120403
  Receipt Date: 20120327
  Transmission Date: 20120825
  Serious: Yes (Other)
  Sender: FDA-Public Use
  Company Number: US-ABBOTT-12P-163-0918907-00

PATIENT
  Age: 62 Year
  Sex: Female

DRUGS (11)
  1. TRIHEXYPHENIDYL HCL [Concomitant]
     Indication: TORTICOLLIS
  2. FOLIC ACID [Concomitant]
     Indication: PRODUCT USED FOR UNKNOWN INDICATION
  3. HUMIRA [Suspect]
     Indication: RHEUMATOID ARTHRITIS
  4. HUMIRA [Suspect]
     Dates: start: 20120316
  5. PRAVACHOL [Concomitant]
     Indication: PRODUCT USED FOR UNKNOWN INDICATION
  6. ZOLOFT [Concomitant]
     Indication: DEPRESSION
  7. NEXIUM [Concomitant]
     Indication: GASTROOESOPHAGEAL REFLUX DISEASE
  8. VALIUM [Concomitant]
     Indication: NERVE INJURY
  9. METHOTREXATE [Concomitant]
     Indication: PRODUCT USED FOR UNKNOWN INDICATION
  10. METHOTREXATE [Concomitant]
     Dates: start: 20120318
  11. FLEXERIL [Concomitant]
     Indication: MUSCLE SPASMS

REACTIONS (1)
  - INTESTINAL MASS [None]
